FAERS Safety Report 12812522 (Version 2)
Quarter: 2016Q4

REPORT INFORMATION
  Report Type: Spontaneous
  Country: JP (occurrence: JP)
  Receive Date: 20161005
  Receipt Date: 20161223
  Transmission Date: 20170207
  Serious: Yes (Other)
  Sender: FDA-Public Use
  Company Number: JP-ASTRAZENECA-2016SF04744

PATIENT
  Age: 90 Year
  Sex: Female

DRUGS (4)
  1. RIZE [Concomitant]
     Active Substance: CLOTIAZEPAM
     Dosage: DOSE UNKNOWN
     Route: 065
  2. LENDORMIN [Concomitant]
     Active Substance: BROTIZOLAM
  3. ARIMIDEX [Suspect]
     Active Substance: ANASTROZOLE
     Indication: BREAST CANCER FEMALE
     Route: 048
  4. SELBEX [Concomitant]
     Active Substance: TEPRENONE

REACTIONS (3)
  - Suicidal ideation [Unknown]
  - Depression [Not Recovered/Not Resolved]
  - Drug dose omission [Unknown]
